FAERS Safety Report 7099239-9 (Version None)
Quarter: 2010Q4

REPORT INFORMATION
  Report Type: 
  Country: None (occurrence: None)
  Receive Date: 20101112
  Receipt Date: 20101101
  Transmission Date: 20110411
  Serious: Yes (Other)
  Sender: FDA-Public Use
  Company Number: US-JNJFOC-20101101269

PATIENT
  Sex: Female

DRUGS (5)
  1. ORTHO CYCLEN-28 [Suspect]
     Indication: METRORRHAGIA
     Dosage: TAKING IT FOR 5 YEARS
     Route: 048
  2. TOPAMAX [Interacting]
     Indication: CONVULSION
     Dosage: AT 7 AM AND 7 PM EACH DAY
     Route: 065
  3. LAMICTAL [Interacting]
     Indication: CONVULSION
     Route: 048
  4. LAMICTAL [Interacting]
     Dosage: STARTED TAKING IT AT 3 PM IN ADDITION TO HER CURRENTLY INSTATED MEDICATION PROGRAM
     Route: 048
  5. LAMOTRIGINE [Interacting]
     Indication: CONVULSION
     Route: 048

REACTIONS (4)
  - CONVULSION [None]
  - DRUG INTERACTION [None]
  - OFF LABEL USE [None]
  - THERAPEUTIC RESPONSE UNEXPECTED [None]
